FAERS Safety Report 6383276-3 (Version None)
Quarter: 2009Q3

REPORT INFORMATION
  Report Type: 
  Country: None (occurrence: None)
  Receive Date: 20090929
  Receipt Date: 20090918
  Transmission Date: 20100115
  Serious: Yes (Life-Threatening, Hospitalization)
  Sender: FDA-Public Use
  Company Number: 2009AP003829

PATIENT
  Age: 81 Year
  Sex: Female

DRUGS (1)
  1. CARBAMAZEPINE [Suspect]
     Indication: DIABETIC NEUROPATHY
     Dosage: 200 MG; QD PO, 200 MG; TAB; PO; QD
     Route: 048
     Dates: start: 20090610

REACTIONS (2)
  - HEPATITIS TOXIC [None]
  - RENAL FAILURE ACUTE [None]
